FAERS Safety Report 11820493 (Version 2)
Quarter: 2017Q4

REPORT INFORMATION
  Report Type: Spontaneous
  Country: US (occurrence: US)
  Receive Date: 20151210
  Receipt Date: 20171121
  Transmission Date: 20180320
  Serious: No
  Sender: FDA-Public Use
  Company Number: US-JNJFOC-20150703131

PATIENT
  Sex: Female

DRUGS (3)
  1. IMBRUVICA [Suspect]
     Active Substance: IBRUTINIB
     Indication: CHRONIC LYMPHOCYTIC LEUKAEMIA
     Route: 048
     Dates: start: 20141014
  2. AMLODIPINE [Concomitant]
     Active Substance: AMLODIPINE BESYLATE
  3. CALCIUM [Concomitant]
     Active Substance: CALCIUM

REACTIONS (3)
  - Faeces soft [Recovering/Resolving]
  - Frequent bowel movements [Recovering/Resolving]
  - Abdominal pain [Unknown]
